FAERS Safety Report 15475242 (Version 1)
Quarter: 2018Q4

REPORT INFORMATION
  Report Type: Spontaneous
  Country: US (occurrence: US)
  Receive Date: 20181008
  Receipt Date: 20181008
  Transmission Date: 20190205
  Serious: No
  Sender: FDA-Public Use
  Company Number: US-CHILTERN-US-2018-000049

PATIENT
  Age: 71 Year
  Sex: Female

DRUGS (4)
  1. NADOLOL. [Concomitant]
     Active Substance: NADOLOL
     Dosage: 5 MG, QD
     Route: 048
  2. SIMVASTATIN. [Concomitant]
     Active Substance: SIMVASTATIN
     Indication: HYPERTENSION
     Dosage: 10 MG, QD
     Route: 048
  3. METFORMIN [Concomitant]
     Active Substance: METFORMIN HYDROCHLORIDE
     Indication: DIABETES MELLITUS
     Dosage: 1000 MG, QD
     Route: 048
     Dates: start: 2007
  4. RHOPRESSA [Suspect]
     Active Substance: NETARSUDIL MESYLATE
     Dosage: UNK UNK, QD
     Route: 047
     Dates: start: 20180515

REACTIONS (4)
  - Sensitivity of teeth [Not Recovered/Not Resolved]
  - Eye pain [Not Recovered/Not Resolved]
  - Rash [Not Recovered/Not Resolved]
  - Oedema peripheral [Not Recovered/Not Resolved]
